FAERS Safety Report 11287811 (Version 1)
Quarter: 2015Q3

REPORT INFORMATION
  Report Type: Report from Study
  Country: US (occurrence: US)
  Receive Date: 20150721
  Receipt Date: 20150721
  Transmission Date: 20151125
  Serious: Yes (Congenital Anomaly, Other)
  Sender: FDA-Public Use
  Company Number: US-AUROBINDO-AUR-APL-2013-07962

PATIENT
  Sex: Male
  Weight: 2.1 kg

DRUGS (5)
  1. RIBAVARIN [Suspect]
     Active Substance: RIBAVIRIN
     Indication: HEPATITIS C
     Dosage: UNK UNK,UNK,
     Route: 064
     Dates: start: 20111020, end: 20111115
  2. NORVIR [Concomitant]
     Active Substance: RITONAVIR
     Indication: HIV INFECTION
     Dosage: 100 MG,UNK,
     Route: 064
  3. TRUVADA [Concomitant]
     Active Substance: EMTRICITABINE\TENOFOVIR DISOPROXIL FUMARATE
     Indication: HIV INFECTION
     Dosage: UNK UNK,UNK,,200-300 MG
     Route: 064
  4. PROVENTIL HFA [Concomitant]
     Active Substance: ALBUTEROL SULFATE
     Indication: ASTHMA
     Dosage: 90 ?G,UNK,,200-300 MG
     Route: 064
  5. REYATAZ [Concomitant]
     Active Substance: ATAZANAVIR SULFATE
     Indication: HIV INFECTION
     Dosage: 300 MG,UNK,
     Route: 064

REACTIONS (4)
  - Deafness congenital [Unknown]
  - Drug interaction [None]
  - Maternal drugs affecting foetus [None]
  - Maternal exposure during pregnancy [Unknown]
